FAERS Safety Report 8804828 (Version 1)
Quarter: 2012Q4

REPORT INFORMATION
  Report Type: Spontaneous
  Country: US (occurrence: None)
  Receive Date: 20120918
  Receipt Date: 20120918
  Transmission Date: 20130627
  Serious: Yes (Other)
  Sender: FDA-Public Use
  Company Number: None

PATIENT
  Age: 53 Year
  Sex: Female
  Weight: 65.77 kg

DRUGS (1)
  1. NITROFURANTOIN [Suspect]
     Indication: URINARY TRACT INFECTION
     Dosage: 1 capsule every 12 hours
     Dates: start: 20120910, end: 20120911

REACTIONS (21)
  - Malaise [None]
  - Vision blurred [None]
  - Butterfly rash [None]
  - Confusional state [None]
  - Eye pain [None]
  - Arthralgia [None]
  - Headache [None]
  - Myalgia [None]
  - Depression [None]
  - Malaise [None]
  - Abdominal pain upper [None]
  - Abdominal pain upper [None]
  - Chromaturia [None]
  - Nausea [None]
  - Decreased appetite [None]
  - Fear [None]
  - Flatulence [None]
  - Diarrhoea [None]
  - Bedridden [None]
  - Fatigue [None]
  - Asthenia [None]
